FAERS Safety Report 4469475-6 (Version None)
Quarter: 2004Q4

REPORT INFORMATION
  Report Type: 
  Country: None (occurrence: None)
  Receive Date: 20041005
  Receipt Date: 20040920
  Transmission Date: 20050328
  Serious: Yes (Death, Other)
  Sender: FDA-Public Use
  Company Number: 2004234832GR

PATIENT
  Age: 12 Year
  Sex: Male

DRUGS (7)
  1. CYCLOPHOSPHAMIDE [Suspect]
     Indication: B-CELL LYMPHOMA STAGE II
     Dosage: 2550 MG/M2 (CUMULATIVE DOSE),
  2. IFOSFAMIDE [Suspect]
     Indication: B-CELL LYMPHOMA STAGE II
     Dosage: 1700 MG/M2 (CUMULATIVE DOSE),
  3. ETOPOSIDE SOLUTION, STERILE(ETOPOSIDE) [Suspect]
     Indication: B-CELL LYMPHOMA STAGE II
     Dosage: 425 MG/M2 (CUMULATIVE DOSE)
  4. METHOTREXATE [Suspect]
     Indication: B-CELL LYMPHOMA STAGE II
     Dosage: 2950 MG/M2 (CUMULATIVE DOSE)
  5. ARACYTIN POWDER, STERILE(CYTARABINE) [Suspect]
     Indication: B-CELL LYMPHOMA STAGE II
     Dosage: 1412.5 MG/M2 (CUMULATIVE DOSE),
  6. VINCRISTINE [Suspect]
     Indication: B-CELL LYMPHOMA STAGE II
     Dosage: 6.5 MG/M2 (CUMULATIVE DOSE),
  7. DOXORUBICIN HCL [Suspect]
     Indication: B-CELL LYMPHOMA
     Dosage: 37.5 MG/M2 (CUMULATIVE DOSE),

REACTIONS (6)
  - ATAXIA TELANGIECTASIA [None]
  - BONE SARCOMA [None]
  - CARDIAC FAILURE ACUTE [None]
  - METASTASIS [None]
  - RENAL FAILURE ACUTE [None]
  - THERAPY NON-RESPONDER [None]
